FAERS Safety Report 20771412 (Version 1)
Quarter: 2022Q2

REPORT INFORMATION
  Report Type: Spontaneous
  Country: US (occurrence: None)
  Receive Date: 20220429
  Receipt Date: 20220429
  Transmission Date: 20220721
  Serious: No
  Sender: FDA-Public Use
  Company Number: 2021A706066

PATIENT
  Sex: Female
  Weight: 52.2 kg

DRUGS (1)
  1. IMFINZI [Suspect]
     Active Substance: DURVALUMAB
     Indication: Neoplasm malignant
     Dosage: UNKNOWN DOSE; TWICE A MONTH
     Route: 042

REACTIONS (3)
  - Rash [Recovered/Resolved]
  - Constipation [Unknown]
  - Fatigue [Not Recovered/Not Resolved]

NARRATIVE: CASE EVENT DATE: 20210101
